FAERS Safety Report 11125930 (Version 5)
Quarter: 2017Q3

REPORT INFORMATION
  Report Type: Spontaneous
  Country: US (occurrence: US)
  Receive Date: 20150520
  Receipt Date: 20170724
  Transmission Date: 20171127
  Serious: Yes (Other)
  Sender: FDA-Public Use
  Company Number: US-GLAXOSMITHKLINE-US2015GSK050354

PATIENT
  Age: 38 Year
  Sex: Female

DRUGS (7)
  1. FLOLAN [Suspect]
     Active Substance: EPOPROSTENOL SODIUM
     Indication: PULMONARY ARTERIAL HYPERTENSION
     Dosage: 20 NG/KG/MIN (CONCENTRATION 45,000 NG/ML, PUMP RATE 87 ML/DAY, VIAL STRENGTH 1.5 MG), CO
     Route: 042
  2. FLOLAN [Suspect]
     Active Substance: EPOPROSTENOL SODIUM
     Dosage: 20 NG/KG/MIN CONTINUOUS
     Route: 042
  3. COUMADIN [Concomitant]
     Active Substance: WARFARIN SODIUM
  4. FLOLAN [Suspect]
     Active Substance: EPOPROSTENOL SODIUM
     Indication: PULMONARY ARTERIAL HYPERTENSION
     Dosage: 20 DF, CO
     Route: 042
  5. FLOLAN [Suspect]
     Active Substance: EPOPROSTENOL SODIUM
     Dosage: UNK
     Dates: start: 20170130
  6. FLOLAN [Suspect]
     Active Substance: EPOPROSTENOL SODIUM
     Indication: PULMONARY ARTERIAL HYPERTENSION
     Dosage: 20 NG/KG/MIN CONTINUOUS
     Dates: start: 20050819
  7. FLOLAN [Suspect]
     Active Substance: EPOPROSTENOL SODIUM
     Indication: PULMONARY ARTERIAL HYPERTENSION
     Dosage: UNK
     Dates: start: 20170130

REACTIONS (7)
  - Cellulitis [Unknown]
  - Catheter site erythema [Unknown]
  - Rash [Unknown]
  - Rash pruritic [Unknown]
  - Catheter site pruritus [Unknown]
  - Device leakage [Unknown]
  - Dermatitis contact [Unknown]

NARRATIVE: CASE EVENT DATE: 20050819
